FAERS Safety Report 8346192-3 (Version None)
Quarter: 2012Q2

REPORT INFORMATION
  Report Type: 
  Country: None (occurrence: None)
  Receive Date: 20120509
  Receipt Date: 20120425
  Transmission Date: 20120825
  Serious: Yes (Death, Life-Threatening, Hospitalization, Other)
  Sender: FDA-Public Use
  Company Number: US-MYLANLABS-2009AC000257

PATIENT
  Sex: Male
  Weight: 89.36 kg

DRUGS (24)
  1. TEMAZEPAM [Concomitant]
  2. PHENERGAN [Concomitant]
  3. ACIPHEX [Concomitant]
  4. ATROVENT [Concomitant]
     Dosage: 2 PUFFS
  5. GLIPIZIDE [Concomitant]
  6. PROPAFENONE HCL [Concomitant]
  7. NAPROXEN [Concomitant]
  8. HYDROCODONE BITARTRATE AND ACETAMINOPHEN [Concomitant]
  9. AVANDIA [Concomitant]
  10. PLAVIX [Concomitant]
  11. GLUCOPHAGE [Concomitant]
  12. CELEBREX [Concomitant]
  13. DIGOXIN [Suspect]
     Indication: PRODUCT USED FOR UNKNOWN INDICATION
     Route: 048
     Dates: start: 20060913
  14. ACTOS [Concomitant]
  15. RESTORIL [Concomitant]
  16. BETAMETHASONE W/CLOTRIMAZOLE [Concomitant]
  17. PROCHLORPERAZINE [Concomitant]
  18. METFORMIN HCL [Concomitant]
  19. DILTIAZEM [Concomitant]
  20. RYTHMOL [Concomitant]
  21. TUSSIONEX [Concomitant]
  22. TAZTIA XT [Concomitant]
  23. LOTREL [Concomitant]
     Dosage: 10/20MG QD
  24. LEVAQUIN [Concomitant]

REACTIONS (42)
  - ILL-DEFINED DISORDER [None]
  - AORTIC ANEURYSM [None]
  - NAUSEA [None]
  - DYSPNOEA [None]
  - URINARY TRACT INFECTION [None]
  - ENDOTRACHEAL INTUBATION [None]
  - APNOEA [None]
  - CARDIAC FAILURE CONGESTIVE [None]
  - FATIGUE [None]
  - SUDDEN DEATH [None]
  - ATELECTASIS [None]
  - PLEURAL EFFUSION [None]
  - BRADYCARDIA [None]
  - INJURY [None]
  - HYPERTENSION [None]
  - ARTHRALGIA [None]
  - CHEST PAIN [None]
  - ARRHYTHMIA [None]
  - PNEUMONITIS [None]
  - ABDOMINAL PAIN [None]
  - JOINT SWELLING [None]
  - CARDIOMEGALY [None]
  - HYPOTENSION [None]
  - BACK PAIN [None]
  - OROPHARYNGEAL PAIN [None]
  - ELECTROCARDIOGRAM ABNORMAL [None]
  - SPINAL OSTEOARTHRITIS [None]
  - FLANK PAIN [None]
  - PULSE ABSENT [None]
  - DIABETES MELLITUS [None]
  - ABDOMINAL DISCOMFORT [None]
  - ARTHRITIS [None]
  - PERICARDITIS [None]
  - RESUSCITATION [None]
  - ABDOMINAL DISTENSION [None]
  - OEDEMA PERIPHERAL [None]
  - ECONOMIC PROBLEM [None]
  - DEATH [None]
  - VIRAL INFECTION [None]
  - BRONCHITIS [None]
  - ATRIAL FIBRILLATION [None]
  - HEART RATE IRREGULAR [None]
